FAERS Safety Report 7291489-1 (Version None)
Quarter: 2011Q1

REPORT INFORMATION
  Report Type: 
  Country: None (occurrence: None)
  Receive Date: 20110117
  Receipt Date: 20110117
  Transmission Date: 20110831
  Serious: Yes (Hospitalization)
  Sender: FDA-Public Use
  Company Number: AUR-APL-2011-00277

PATIENT
  Age: 47 Year
  Sex: Male
  Weight: 78 kg

DRUGS (9)
  1. ONDANSETRON [Concomitant]
  2. CEFAZOLIN [Suspect]
     Indication: ANTIBIOTIC THERAPY
     Dosage: 2G-BID-IV
     Route: 042
     Dates: start: 20101229, end: 20110103
  3. CLONAZEPAM [Concomitant]
  4. OMEPRAZOLE [Concomitant]
  5. DIPIRONA [Concomitant]
  6. CLEXANE [Concomitant]
  7. FUROSEMIDE [Concomitant]
  8. BROMOPRIDA [Concomitant]
  9. TRAMADOL HCL [Concomitant]

REACTIONS (1)
  - HYPERAEMIA [None]
